FAERS Safety Report 8798502 (Version 8)
Quarter: 2013Q2

REPORT INFORMATION
  Report Type: Spontaneous
  Country: US (occurrence: US)
  Receive Date: 20120920
  Receipt Date: 20130410
  Transmission Date: 20140414
  Serious: Yes (Hospitalization, Other)
  Sender: FDA-Public Use
  Company Number: US-009507513-1201USA03056

PATIENT
  Sex: Female
  Weight: 65.76 kg

DRUGS (7)
  1. FOSAMAX [Suspect]
     Indication: OSTEOPOROSIS
     Dosage: 10 MG, QD
     Route: 048
     Dates: start: 199701, end: 200501
  2. FOSAMAX [Suspect]
     Dosage: 10 MG, QD
     Route: 048
     Dates: start: 200503, end: 200703
  3. FOSAMAX [Suspect]
     Dosage: 70 MG, QW
     Route: 048
     Dates: start: 200501, end: 200503
  4. FOSAMAX [Suspect]
     Dosage: UNK
     Route: 048
     Dates: end: 20060814
  5. VITAMINS (UNSPECIFIED) [Concomitant]
     Dosage: UNK
     Dates: start: 1970
  6. HORMONES (UNSPECIFIED) [Concomitant]
     Dosage: UNK
     Dates: start: 1980
  7. CALCIUM (UNSPECIFIED) [Concomitant]
     Indication: OSTEOPOROSIS
     Dosage: 1290 MG, QD

REACTIONS (66)
  - Intramedullary rod insertion [Unknown]
  - Medical device removal [Unknown]
  - Medical device implantation [Unknown]
  - Rotator cuff repair [Unknown]
  - Open reduction of fracture [Unknown]
  - Medical device removal [Unknown]
  - Carpal tunnel decompression [Unknown]
  - Foot operation [Unknown]
  - Femur fracture [Unknown]
  - Fall [Unknown]
  - Foot fracture [Unknown]
  - Stress fracture [Unknown]
  - Foot fracture [Unknown]
  - Fracture delayed union [Unknown]
  - Vitamin D deficiency [Unknown]
  - Cutaneous lupus erythematosus [Unknown]
  - Dry skin [Unknown]
  - Fracture delayed union [Recovered/Resolved]
  - Arthritis [Unknown]
  - Breast cyst [Unknown]
  - Breast mass [Unknown]
  - Irritable bowel syndrome [Unknown]
  - Compression fracture [Unknown]
  - Pneumonia [Unknown]
  - Rib fracture [Unknown]
  - Pleural fibrosis [Unknown]
  - Renal mass [Unknown]
  - Spinal pain [Unknown]
  - Bone scan abnormal [Unknown]
  - Foot fracture [Unknown]
  - Bone lesion [Unknown]
  - Osteoarthritis [Unknown]
  - Rib fracture [Unknown]
  - Injection site reaction [Unknown]
  - Scan abnormal [Unknown]
  - Dermatitis allergic [Unknown]
  - Disease progression [Unknown]
  - Osteopenia [Not Recovered/Not Resolved]
  - Hypogammaglobulinaemia [Unknown]
  - Congenital foot malformation [Unknown]
  - Increased tendency to bruise [Unknown]
  - Body height decreased [Unknown]
  - Appendicectomy [Unknown]
  - Pulmonary mass [Unknown]
  - Urinary tract infection [Unknown]
  - Fatigue [Unknown]
  - Osteopenia [Not Recovered/Not Resolved]
  - Weight decreased [Unknown]
  - Device failure [Unknown]
  - Decreased appetite [Unknown]
  - Hot flush [Not Recovered/Not Resolved]
  - Pain in extremity [Unknown]
  - Bone pain [Unknown]
  - Constipation [Unknown]
  - Alopecia [Unknown]
  - Myalgia [Unknown]
  - Bone pain [Unknown]
  - Pruritus [Unknown]
  - Arthralgia [Unknown]
  - Bone pain [Unknown]
  - Diarrhoea [Unknown]
  - Constipation [Unknown]
  - Drug ineffective [Unknown]
  - Back pain [Unknown]
  - Drug ineffective [Unknown]
  - Gastrooesophageal reflux disease [Unknown]
